FAERS Safety Report 24562864 (Version 4)
Quarter: 2024Q4

REPORT INFORMATION
  Report Type: Spontaneous
  Country: US (occurrence: US)
  Receive Date: 20241029
  Receipt Date: 20241213
  Transmission Date: 20250115
  Serious: No
  Sender: LUPIN
  Company Number: US-LUPIN PHARMACEUTICALS INC.-2024-10494

PATIENT

DRUGS (1)
  1. NYSTATIN\TRIAMCINOLONE ACETONIDE [Suspect]
     Active Substance: NYSTATIN\TRIAMCINOLONE ACETONIDE
     Indication: Lichen sclerosus
     Dosage: UNK UNK, BID
     Route: 061

REACTIONS (3)
  - Adverse event [Unknown]
  - Product quality issue [Unknown]
  - Product use in unapproved indication [Unknown]
